FAERS Safety Report 10098721 (Version 2)
Quarter: 2019Q4

REPORT INFORMATION
  Report Type: Report from Study
  Country: DK (occurrence: DK)
  Receive Date: 20140423
  Receipt Date: 20191031
  Transmission Date: 20200122
  Serious: Yes (Death, Congenital Anomaly)
  Sender: FDA-Public Use
  Company Number: DK-TEVA-476101ISR

PATIENT

DRUGS (1)
  1. LEVETIRACETAM. [Suspect]
     Active Substance: LEVETIRACETAM
     Indication: EPILEPSY
     Route: 064

REACTIONS (3)
  - Coarctation of the aorta [Fatal]
  - Foetal exposure during pregnancy [Recovered/Resolved]
  - Atrial septal defect [Fatal]
